FAERS Safety Report 5237550-4 (Version None)
Quarter: 2007Q1

REPORT INFORMATION
  Report Type: 
  Country: None (occurrence: None)
  Receive Date: 20070213
  Receipt Date: 20070205
  Transmission Date: 20070707
  Serious: Yes (Hospitalization, Other)
  Sender: FDA-Public Use
  Company Number: US-ELI_LILLY_AND_COMPANY-US200701002739

PATIENT
  Age: 50 Year
  Sex: Female
  Weight: 68.027 kg

DRUGS (9)
  1. GEMZAR [Suspect]
     Indication: BREAST CANCER METASTATIC
     Dosage: 800 MG/M2, UNK
     Route: 042
     Dates: start: 20060915, end: 20061020
  2. ARANESP [Concomitant]
     Dosage: 300 UG, OTHER
     Route: 058
  3. PALONOSETRON [Concomitant]
     Dosage: 0.25 UNK, WEEKLY (1/W)
  4. ARIMIDEX [Concomitant]
     Dosage: 1 MG, DAILY (1/D)
     Route: 048
  5. SODIUM CHLORIDE [Concomitant]
  6. HEPARIN LOCK-FLUSH [Concomitant]
     Dosage: 6 ML, UNK
     Route: 042
  7. ZOLADEX [Concomitant]
     Indication: BREAST CANCER METASTATIC
     Dosage: 3.6 UNK, UNK
  8. ZOLEDRONIC ACID [Concomitant]
     Indication: BREAST CANCER METASTATIC
     Dosage: 4 UNK, UNK
     Dates: end: 20061101
  9. CLEXANE [Concomitant]
     Dosage: 20 MG, DAILY (1/D)
     Route: 058

REACTIONS (3)
  - CARDIAC TAMPONADE [None]
  - PLEURAL EFFUSION [None]
  - THROMBOTIC MICROANGIOPATHY [None]
